FAERS Safety Report 13160633 (Version 1)
Quarter: 2017Q1

REPORT INFORMATION
  Report Type: Spontaneous
  Country: EG (occurrence: EG)
  Receive Date: 20170129
  Receipt Date: 20170129
  Transmission Date: 20170428
  Serious: Yes (Hospitalization)
  Sender: FDA-Public Use
  Company Number: PHHY2017EG005794

PATIENT
  Sex: Male

DRUGS (1)
  1. ENTRESTO [Suspect]
     Active Substance: SACUBITRIL\VALSARTAN
     Indication: CARDIAC FAILURE
     Dosage: 100 MG (1 DF), BID
     Route: 048
     Dates: start: 20161115, end: 20170120

REACTIONS (8)
  - Blood immunoglobulin E increased [Unknown]
  - Hypersensitivity [Recovering/Resolving]
  - Rhinorrhoea [Recovering/Resolving]
  - Urticaria [Unknown]
  - Rash [Unknown]
  - Cough [Unknown]
  - Sneezing [Unknown]
  - Fatigue [Unknown]

NARRATIVE: CASE EVENT DATE: 20170111
